FAERS Safety Report 8250091-5 (Version None)
Quarter: 2012Q2

REPORT INFORMATION
  Report Type: 
  Country: None (occurrence: None)
  Receive Date: 20120402
  Receipt Date: 20120324
  Transmission Date: 20120825
  Serious: Yes (Hospitalization)
  Sender: FDA-Public Use
  Company Number: BR-ASTRAZENECA-2012SE20319

PATIENT
  Age: 61 Year
  Sex: Male
  Weight: 112 kg

DRUGS (3)
  1. ATACAND HCT [Suspect]
     Indication: HYPERTENSION
     Dosage: 16+12.5 MG DAILY
     Route: 048
     Dates: start: 19990101
  2. ASPRINA PREVENT [Concomitant]
     Route: 048
     Dates: start: 19990101
  3. DIOPRESS [Concomitant]
     Route: 048
     Dates: start: 19990101

REACTIONS (4)
  - DEPRESSION [None]
  - MYOCARDIAL INFARCTION [None]
  - MUSCULAR WEAKNESS [None]
  - BLOOD CHOLESTEROL INCREASED [None]
